FAERS Safety Report 23806737 (Version 1)
Quarter: 2024Q2

REPORT INFORMATION
  Report Type: Spontaneous
  Country: DE (occurrence: DE)
  Receive Date: 20240502
  Receipt Date: 20240502
  Transmission Date: 20240716
  Serious: Yes (Other)
  Sender: FDA-Public Use
  Company Number: DE-ASTELLAS-2024US000615

PATIENT
  Age: 73 Year
  Sex: Male

DRUGS (3)
  1. TAMSULOSIN [Suspect]
     Active Substance: TAMSULOSIN
     Indication: Benign prostatic hyperplasia
     Dosage: ONCE DAILY
     Route: 048
     Dates: start: 202204
  2. TAMSULOSIN [Suspect]
     Active Substance: TAMSULOSIN
     Indication: Benign prostatic hyperplasia
     Dosage: ONCE DAILY
     Route: 048
     Dates: start: 202204
  3. TAMSULOSIN HYDROCHLORIDE [Suspect]
     Active Substance: TAMSULOSIN HYDROCHLORIDE
     Indication: Benign prostatic hyperplasia
     Dosage: ONCE DAILY
     Route: 048

REACTIONS (6)
  - Syncope [Recovered/Resolved]
  - Alcohol interaction [Not Recovered/Not Resolved]
  - Cardiovascular disorder [Recovered/Resolved]
  - Dysuria [Recovering/Resolving]
  - Condition aggravated [Recovered/Resolved]
  - Blood pressure decreased [Recovered/Resolved]

NARRATIVE: CASE EVENT DATE: 20220522
